FAERS Safety Report 9292519 (Version 4)
Quarter: 2013Q3

REPORT INFORMATION
  Report Type: Spontaneous
  Country: DE (occurrence: None)
  Receive Date: 20130513
  Receipt Date: 20130920
  Transmission Date: 20140515
  Serious: Yes (Hospitalization, Other)
  Sender: FDA-Public Use
  Company Number: ACO_36009_2013

PATIENT
  Age: 38 Year
  Sex: Female

DRUGS (3)
  1. FAMPRIDINE-SR [Suspect]
     Indication: MULTIPLE SCLEROSIS
     Route: 048
     Dates: start: 20120511
  2. REBIF (INTERFERON BETA-1A) [Concomitant]
  3. SERTRALINE (SERTRALINE HYDROCHLORIDE) [Concomitant]

REACTIONS (2)
  - Hand fracture [None]
  - Fall [None]
